FAERS Safety Report 4988524-X (Version None)
Quarter: 2006Q2

REPORT INFORMATION
  Report Type: 
  Country: None (occurrence: None)
  Receive Date: 20060426
  Receipt Date: 20060410
  Transmission Date: 20061013
  Serious: Yes (Death, Hospitalization, Other)
  Sender: FDA-Public Use
  Company Number: FR 050306063

PATIENT
  Age: 74 Year
  Sex: Female

DRUGS (1)
  1. GEMZAR [Suspect]
     Indication: ADENOCARCINOMA PANCREAS
     Dosage: 1 UNK, OTHER, INTRAVENOUS
     Route: 042

REACTIONS (12)
  - ASTHENIA [None]
  - BIOPSY KIDNEY ABNORMAL [None]
  - DYSPNOEA EXERTIONAL [None]
  - HAEMOLYTIC URAEMIC SYNDROME [None]
  - HEADACHE [None]
  - HYPERTENSION [None]
  - MALIGNANT NEOPLASM PROGRESSION [None]
  - MYOCARDIAL ISCHAEMIA [None]
  - OEDEMA PERIPHERAL [None]
  - PANCREATIC CARCINOMA METASTATIC [None]
  - REFUSAL OF TREATMENT BY PATIENT [None]
  - WEIGHT INCREASED [None]
